FAERS Safety Report 6895584-8 (Version None)
Quarter: 2010Q3

REPORT INFORMATION
  Report Type: 
  Country: None (occurrence: None)
  Receive Date: 20100802
  Receipt Date: 20100728
  Transmission Date: 20110219
  Serious: Yes (Life-Threatening, Other)
  Sender: FDA-Public Use
  Company Number: PHHY2010US49757

PATIENT
  Sex: Female

DRUGS (4)
  1. RECLAST [Suspect]
     Dosage: UNK
  2. LYRICA [Concomitant]
     Indication: HERPES ZOSTER
     Dosage: UNK
  3. ELAVIL [Concomitant]
     Dosage: UNK
  4. MOBIC [Concomitant]
     Dosage: UNK

REACTIONS (5)
  - CHILLS [None]
  - DYSPNOEA [None]
  - FEELING ABNORMAL [None]
  - HYPERHIDROSIS [None]
  - PYREXIA [None]
